FAERS Safety Report 5577088-8 (Version None)
Quarter: 2007Q4

REPORT INFORMATION
  Report Type: 
  Country: None (occurrence: None)
  Receive Date: 20071228
  Receipt Date: 20071218
  Transmission Date: 20080405
  Serious: Yes (Other)
  Sender: FDA-Public Use
  Company Number: JP-PFIZER INC-2007103653

PATIENT
  Age: 70 Year
  Sex: Female

DRUGS (3)
  1. SOLANAX [Suspect]
     Route: 048
  2. DEPAS [Suspect]
     Route: 048
  3. DORNER [Suspect]
     Route: 048

REACTIONS (1)
  - PARKINSONISM [None]
